FAERS Safety Report 7928585-9 (Version None)
Quarter: 2011Q4

REPORT INFORMATION
  Report Type: 
  Country: None (occurrence: None)
  Receive Date: 20111118
  Receipt Date: 20111115
  Transmission Date: 20120403
  Serious: Yes (Hospitalization)
  Sender: FDA-Public Use
  Company Number: DK-AMGEN-DNKSP2011053655

PATIENT
  Age: 64 Year
  Sex: Male
  Weight: 81 kg

DRUGS (19)
  1. LANSOPRAZOLE [Concomitant]
     Indication: PROPHYLAXIS
     Dosage: 30 MG, UNK
     Route: 048
     Dates: start: 20110101
  2. MORPHINE [Concomitant]
     Indication: PAIN
     Dosage: 10 MG, UNK
     Route: 048
     Dates: start: 20110401
  3. FUROSEMIDE [Concomitant]
     Indication: POLYURIA
     Dosage: 40 MG, UNK
     Route: 048
     Dates: start: 20110101
  4. NEUPOGEN [Suspect]
     Indication: DIFFUSE LARGE B-CELL LYMPHOMA
     Dosage: 6 MG, UNK
     Route: 058
     Dates: start: 20110427
  5. RITUXIMAB [Suspect]
     Indication: DIFFUSE LARGE B-CELL LYMPHOMA
     Dosage: 750 MG, QD
     Route: 042
     Dates: start: 20110426
  6. DOXORUBICIN HCL [Suspect]
     Indication: DIFFUSE LARGE B-CELL LYMPHOMA
     Dosage: 100 MG, QD
     Route: 042
     Dates: start: 20110426
  7. ALLOPURINOL [Concomitant]
     Indication: PROPHYLAXIS
     Dosage: UNK
     Route: 048
     Dates: start: 20110412, end: 20110708
  8. ELECTROLYTES NOS W/MACROGOL 3350 [Concomitant]
     Indication: CONSTIPATION
     Dosage: UNK
     Dates: start: 20110101
  9. MOVICOL-HALF [Concomitant]
     Indication: CONSTIPATION
     Dosage: UNK
     Dates: start: 20110101
  10. AMLODIPINE [Concomitant]
     Indication: HYPERTENSION
     Dosage: UNK
     Route: 048
     Dates: start: 20110415
  11. SULFAMETOXAZOL + TRIMETOPRIMA [Concomitant]
     Indication: PROPHYLAXIS
     Dosage: 400 MG, UNK
     Route: 048
     Dates: start: 20110628
  12. PREDNISONE TAB [Suspect]
     Indication: DIFFUSE LARGE B-CELL LYMPHOMA
     Dosage: 100 MG, QD
     Route: 048
     Dates: start: 20110426
  13. CYCLOPHOSPHAMIDE [Suspect]
     Indication: DIFFUSE LARGE B-CELL LYMPHOMA
     Dosage: 1500 MG, QD
     Route: 042
     Dates: start: 20110426
  14. ENOXAPARIN SODIUM [Concomitant]
     Indication: PAIN
     Dosage: UNK
     Route: 058
     Dates: start: 20110826
  15. MORPHINE SULFATE [Concomitant]
     Indication: PAIN
     Dosage: UNK
     Route: 048
     Dates: start: 20110401
  16. SENNOSIDES A+B [Concomitant]
  17. VINCRISTINE [Suspect]
     Indication: DIFFUSE LARGE B-CELL LYMPHOMA
     Dosage: 2 MG, QD
     Route: 042
     Dates: start: 20110426
  18. ACYCLOVIR [Concomitant]
     Indication: PROPHYLAXIS
     Dosage: 400 MG, UNK
     Route: 048
     Dates: start: 20110412
  19. LACTULOSE [Concomitant]
     Indication: CONSTIPATION
     Dosage: 25 ML, UNK
     Route: 048
     Dates: start: 20110101

REACTIONS (5)
  - FEBRILE NEUTROPENIA [None]
  - PULMONARY EMBOLISM [None]
  - MUSCLE RUPTURE [None]
  - PNEUMONIA [None]
  - PYREXIA [None]
